FAERS Safety Report 22247879 (Version 1)
Quarter: 2023Q2

REPORT INFORMATION
  Report Type: Spontaneous
  Country: US (occurrence: US)
  Receive Date: 20230425
  Receipt Date: 20230425
  Transmission Date: 20230721
  Serious: Yes (Other)
  Sender: FDA-Public Use
  Company Number: US-SA-SAC20230421000899

PATIENT

DRUGS (1)
  1. GOLD BOND MEDICATED ORIGINAL STRENGTH BODY [Suspect]
     Active Substance: MENTHOL
     Dosage: UNK

REACTIONS (2)
  - Mesothelioma malignant [Unknown]
  - Exposure to chemical pollution [Unknown]
